FAERS Safety Report 12081830 (Version 2)
Quarter: 2016Q1

REPORT INFORMATION
  Report Type: Spontaneous
  Country: DE (occurrence: DE)
  Receive Date: 20160216
  Receipt Date: 20160223
  Transmission Date: 20160526
  Serious: Yes (Other)
  Sender: FDA-Public Use
  Company Number: DE-B.I. PHARMACEUTICALS,INC./RIDGEFIELD-2016-BI-08219DE

PATIENT
  Sex: Male

DRUGS (1)
  1. OFEV [Suspect]
     Active Substance: NINTEDANIB
     Indication: IDIOPATHIC PULMONARY FIBROSIS
     Route: 065
     Dates: start: 201506

REACTIONS (8)
  - Diarrhoea [Not Recovered/Not Resolved]
  - Arteriosclerosis [Unknown]
  - Hemiplegia [Unknown]
  - Speech disorder [Unknown]
  - Abasia [Unknown]
  - Cardiovascular disorder [Unknown]
  - Leg amputation [Unknown]
  - Cerebrovascular accident [Recovered/Resolved with Sequelae]

NARRATIVE: CASE EVENT DATE: 20151125
